FAERS Safety Report 26008666 (Version 1)
Quarter: 2025Q4

REPORT INFORMATION
  Report Type: Report from Study
  Country: US (occurrence: US)
  Receive Date: 20251106
  Receipt Date: 20251106
  Transmission Date: 20260118
  Serious: Yes (Other)
  Sender: ABBVIE
  Company Number: US-ABBVIE-6532830

PATIENT
  Age: 54 Year
  Sex: Female

DRUGS (3)
  1. SKYRIZI [Suspect]
     Active Substance: RISANKIZUMAB-RZAA
     Indication: Psoriasis
     Dosage: TIME INTERVAL: TOTAL: STRENGTH 150MG/ML AT WEEK 0
     Route: 058
     Dates: start: 20251001, end: 20251001
  2. SKYRIZI [Suspect]
     Active Substance: RISANKIZUMAB-RZAA
     Dosage: STRENGTH 150MG/ML AT WEEK 4 EVERY 12 WEEKS THEREAFTER
     Route: 058
     Dates: start: 20251029
  3. OTEZLA [Concomitant]
     Active Substance: APREMILAST
     Indication: Product used for unknown indication

REACTIONS (9)
  - Cyst [Unknown]
  - Headache [Recovered/Resolved]
  - Drug ineffective [Unknown]
  - Skin lesion [Recovered/Resolved]
  - Staphylococcal infection [Recovered/Resolved]
  - Poor quality product administered [Unknown]
  - Pruritus [Not Recovered/Not Resolved]
  - Erythema [Not Recovered/Not Resolved]
  - Burning sensation [Not Recovered/Not Resolved]

NARRATIVE: CASE EVENT DATE: 20250101
